FAERS Safety Report 20957799 (Version 7)
Quarter: 2023Q1

REPORT INFORMATION
  Report Type: Spontaneous
  Country: ES (occurrence: ES)
  Receive Date: 20220614
  Receipt Date: 20230130
  Transmission Date: 20230418
  Serious: No
  Sender: FDA-Public Use
  Company Number: ES-Zentiva-2022-ZT-004388

PATIENT
  Age: 25 Year
  Sex: Female

DRUGS (14)
  1. PREGABALIN [Suspect]
     Active Substance: PREGABALIN
     Indication: Vulvovaginal pain
     Dosage: 75 MILLIGRAM, BID
     Route: 048
     Dates: start: 202006
  2. PREGABALIN [Suspect]
     Active Substance: PREGABALIN
     Indication: Neuralgia
     Dosage: 75 MILLIGRAM, Q2D
     Route: 065
  3. PREGABALIN [Suspect]
     Active Substance: PREGABALIN
     Indication: Pelvic pain
  4. AMITRIPTYLINE [Interacting]
     Active Substance: AMITRIPTYLINE
     Indication: Vulvovaginal pain
     Dosage: 10 MILLIGRAM, PM,1 TABLET (10 MG) AT NIGHT, WITH INSTRUCTIONS TO DOUBLE THE DOSE EVERY 15 DAYS IN
     Route: 048
     Dates: start: 2020
  5. AMITRIPTYLINE [Interacting]
     Active Substance: AMITRIPTYLINE
     Indication: Neuralgia
     Dosage: AT NIGHT
     Route: 065
     Dates: start: 202006, end: 2020
  6. AMITRIPTYLINE [Interacting]
     Active Substance: AMITRIPTYLINE
     Indication: Pelvic pain
     Dosage: AT NIGHT
     Route: 065
     Dates: start: 202006
  7. ALPHA LIPOIC ACID [Concomitant]
     Active Substance: .ALPHA.-LIPOIC ACID
     Indication: Vulvovaginal pain
     Dosage: 2 DOSAGE FORM, QD
     Route: 065
     Dates: start: 202006
  8. ALPHA LIPOIC ACID [Concomitant]
     Active Substance: .ALPHA.-LIPOIC ACID
     Indication: Neuralgia
  9. ALPHA LIPOIC ACID [Concomitant]
     Active Substance: .ALPHA.-LIPOIC ACID
     Indication: Pelvic pain
  10. ALPHA LIPOIC ACID [Concomitant]
     Active Substance: .ALPHA.-LIPOIC ACID
     Indication: Nutritional supplementation
  11. PALMIDROL [Concomitant]
     Active Substance: PALMIDROL
     Indication: Supplementation therapy
     Dosage: 600 MILLIGRAM
     Route: 065
     Dates: start: 202006
  12. PALMIDROL [Concomitant]
     Active Substance: PALMIDROL
     Indication: Pelvic pain
  13. COMMIPHORA MYRRHA TINCTURE [Concomitant]
     Indication: Supplementation therapy
     Dosage: 2 DOSAGE FORM, QD
     Route: 065
  14. COMMIPHORA MYRRHA TINCTURE [Concomitant]
     Indication: Pelvic pain

REACTIONS (3)
  - Drug intolerance [Unknown]
  - Confusional state [Unknown]
  - Dizziness [Unknown]

NARRATIVE: CASE EVENT DATE: 20200601
